FAERS Safety Report 8815589 (Version 1)
Quarter: 2012Q4

REPORT INFORMATION
  Report Type: 
  Country: US (occurrence: US)
  Receive Date: 20120928
  Receipt Date: 20120928
  Transmission Date: 20130627
  Serious: Yes (Hospitalization, Disabling, Other)
  Sender: FDA-Public Use
  Company Number: US-ELI_LILLY_AND_COMPANY-US201209004887

PATIENT
  Age: 63 None
  Sex: Female

DRUGS (4)
  1. HUMALOG LISPRO [Suspect]
     Indication: TYPE 1 DIABETES MELLITUS
     Dosage: UNK
     Route: 058
     Dates: start: 1986, end: 2004
  2. HUMULIN 30% REGULAR, 70% NPH [Suspect]
     Indication: TYPE 1 DIABETES MELLITUS
     Dosage: 17 u, bid
     Dates: start: 2004
  3. HUMULIN REGULAR [Suspect]
     Indication: TYPE 1 DIABETES MELLITUS
     Dosage: UNK UNK, prn
     Dates: start: 2004
  4. LANTUS [Concomitant]
     Dosage: UNK, each evening

REACTIONS (10)
  - Abscess [Unknown]
  - Blood glucose increased [Unknown]
  - Nonspecific reaction [Not Recovered/Not Resolved]
  - Nasopharyngitis [Unknown]
  - Staphylococcal abscess [Unknown]
  - Malaise [Unknown]
  - Immunodeficiency [Unknown]
  - Blood disorder [Not Recovered/Not Resolved]
  - White blood cell count decreased [Not Recovered/Not Resolved]
  - Drug dose omission [Unknown]
